FAERS Safety Report 4617820-0 (Version None)
Quarter: 2005Q1

REPORT INFORMATION
  Report Type: 
  Country: None (occurrence: None)
  Receive Date: 20050315
  Receipt Date: 20040307
  Transmission Date: 20050727
  Serious: Yes (Other)
  Sender: FDA-Public Use
  Company Number: 2005-00468

PATIENT
  Age: 75 Year
  Sex: Male

DRUGS (1)
  1. IMMUCYST (BCG - IT (CONNAUGHT)), AVENTIS PASTEUR LTD., LOT NOT REP, 14 [Suspect]
     Indication: BLADDER CANCER
     Dosage: TOTAL DOSE 324 MG (81.0 MG,4); I.VES., BLADDER
     Route: 043
     Dates: start: 20050112, end: 20050209

REACTIONS (4)
  - BLADDER CONSTRICTION [None]
  - PYREXIA [None]
  - URINARY RETENTION [None]
  - VESICAL TENESMUS [None]
